FAERS Safety Report 10181145 (Version 1)
Quarter: 2014Q2

REPORT INFORMATION
  Report Type: Spontaneous
  Country: US (occurrence: US)
  Receive Date: 20140519
  Receipt Date: 20140519
  Transmission Date: 20141212
  Serious: No
  Sender: FDA-Public Use
  Company Number: US-AMGEN INC.-USASP2014026933

PATIENT
  Age: 94 Year
  Sex: Female

DRUGS (4)
  1. PROLIA [Suspect]
     Indication: OSTEOPOROSIS POSTMENOPAUSAL
     Route: 065
  2. SYNTHROID [Concomitant]
  3. OSCAL                              /00514701/ [Concomitant]
  4. VITAMIN D                          /00107901/ [Concomitant]

REACTIONS (5)
  - Adverse drug reaction [Recovering/Resolving]
  - Burning sensation [Recovered/Resolved]
  - Dizziness [Recovering/Resolving]
  - Papule [Recovering/Resolving]
  - Pruritus [Recovering/Resolving]
